FAERS Safety Report 5317321-0 (Version None)
Quarter: 2007Q2

REPORT INFORMATION
  Report Type: 
  Country: None (occurrence: None)
  Receive Date: 20070504
  Receipt Date: 20070424
  Transmission Date: 20071010
  Serious: Yes (Other)
  Sender: FDA-Public Use
  Company Number: US-PFIZER INC-2007033744

PATIENT
  Sex: Male
  Weight: 75 kg

DRUGS (1)
  1. DEPO-TESTOSTERONE [Suspect]
     Indication: BLOOD TESTOSTERONE DECREASED
     Dates: start: 19980101, end: 20060101

REACTIONS (2)
  - HEART RATE IRREGULAR [None]
  - THROMBOSIS [None]
